FAERS Safety Report 15681711 (Version 1)
Quarter: 2018Q4

REPORT INFORMATION
  Report Type: Spontaneous
  Country: FR (occurrence: FR)
  Receive Date: 20181203
  Receipt Date: 20181203
  Transmission Date: 20190205
  Serious: Yes (Other)
  Sender: FDA-Public Use
  Company Number: FR-MYLANLABS-2018M1089711

PATIENT
  Age: 68 Year
  Sex: Male
  Weight: 76 kg

DRUGS (1)
  1. DOXAZOSIN [Suspect]
     Active Substance: DOXAZOSIN\DOXAZOSIN MESYLATE
     Indication: DYSURIA
     Dosage: 8 MILLIGRAM, QD
     Route: 048
     Dates: start: 20180131, end: 20180201

REACTIONS (2)
  - Loss of consciousness [Recovering/Resolving]
  - Malaise [Recovering/Resolving]

NARRATIVE: CASE EVENT DATE: 20180201
